FAERS Safety Report 8142045-4 (Version None)
Quarter: 2012Q1

REPORT INFORMATION
  Report Type: 
  Country: None (occurrence: None)
  Receive Date: 20120216
  Receipt Date: 20120207
  Transmission Date: 20120608
  Serious: Yes (Hospitalization, Disabling, Other)
  Sender: FDA-Public Use
  Company Number: US-MERCK-1102USA02523

PATIENT
  Age: 66 Year
  Sex: Female

DRUGS (4)
  1. FOSAMAX PLUS D [Suspect]
     Indication: OSTEOPENIA
     Route: 048
     Dates: start: 20060623, end: 20090101
  2. FOSAMAX PLUS D [Suspect]
     Indication: OSTEOPOROSIS
     Route: 048
     Dates: start: 20060623, end: 20090101
  3. FOSAMAX [Suspect]
     Indication: OSTEOPOROSIS
     Route: 048
     Dates: start: 20051012, end: 20060622
  4. FOSAMAX [Suspect]
     Indication: OSTEOPENIA
     Route: 048
     Dates: start: 20051012, end: 20060622

REACTIONS (53)
  - MIGRAINE [None]
  - INFECTION [None]
  - INCREASED TENDENCY TO BRUISE [None]
  - EYELID DISORDER [None]
  - ANXIETY [None]
  - FEMUR FRACTURE [None]
  - JOINT INJURY [None]
  - FOOT FRACTURE [None]
  - TOOTH DISORDER [None]
  - SPINAL DISORDER [None]
  - STAPHYLOCOCCAL INFECTION [None]
  - DEPRESSION [None]
  - SHOCK HAEMORRHAGIC [None]
  - HIATUS HERNIA [None]
  - SPINAL OSTEOARTHRITIS [None]
  - INSOMNIA [None]
  - DYSPNOEA [None]
  - HYPOACUSIS [None]
  - URINARY INCONTINENCE [None]
  - TACHYCARDIA [None]
  - OROPHARYNGEAL PAIN [None]
  - MYALGIA [None]
  - HYPERPARATHYROIDISM SECONDARY [None]
  - OSTEOPOROSIS [None]
  - MACULAR DEGENERATION [None]
  - FATIGUE [None]
  - DISSEMINATED INTRAVASCULAR COAGULATION [None]
  - SURGICAL FAILURE [None]
  - ANAEMIA OF CHRONIC DISEASE [None]
  - CARPAL TUNNEL SYNDROME [None]
  - RENAL FAILURE CHRONIC [None]
  - HERPES ZOSTER [None]
  - GASTROINTESTINAL DISORDER [None]
  - GASTRIC ULCER [None]
  - TRICHOTILLOMANIA [None]
  - AMINO ACID LEVEL INCREASED [None]
  - FRACTURE NONUNION [None]
  - MULTI-ORGAN FAILURE [None]
  - HYPERTENSION [None]
  - PEPTIC ULCER [None]
  - OBSESSIVE-COMPULSIVE DISORDER [None]
  - CATARACT [None]
  - ASTHMA [None]
  - ANAEMIA [None]
  - OSTEONECROSIS [None]
  - LYMPHADENOPATHY [None]
  - MYOSITIS [None]
  - MITRAL VALVE PROLAPSE [None]
  - BACK PAIN [None]
  - NEPHROLITHIASIS [None]
  - BONE DISORDER [None]
  - POST-TRAUMATIC STRESS DISORDER [None]
  - LIMB ASYMMETRY [None]
